FAERS Safety Report 24250332 (Version 1)
Quarter: 2024Q3

REPORT INFORMATION
  Report Type: Spontaneous
  Country: JP (occurrence: JP)
  Receive Date: 20240826
  Receipt Date: 20240826
  Transmission Date: 20241017
  Serious: Yes (Other)
  Sender: BRISTOL MYERS SQUIBB
  Company Number: JP-ONO-2024JP004951

PATIENT
  Age: 74 Year
  Sex: Male

DRUGS (3)
  1. OPDIVO [Suspect]
     Active Substance: NIVOLUMAB
     Indication: Non-small cell lung cancer
     Route: 041
     Dates: start: 20231121, end: 20231121
  2. CARBOPLATIN [Concomitant]
     Active Substance: CARBOPLATIN
     Indication: Non-small cell lung cancer
     Dates: start: 20231121, end: 20231121
  3. PEMETREXED [Concomitant]
     Active Substance: PEMETREXED
     Indication: Non-small cell lung cancer
     Dates: start: 20231121, end: 20231121

REACTIONS (2)
  - Dermatitis [Recovering/Resolving]
  - Pulmonary fistula [Unknown]

NARRATIVE: CASE EVENT DATE: 20231201
